FAERS Safety Report 11628315 (Version 1)
Quarter: 2015Q4

REPORT INFORMATION
  Report Type: Spontaneous
  Country: US (occurrence: US)
  Receive Date: 20151014
  Receipt Date: 20151014
  Transmission Date: 20160304
  Serious: Yes (Hospitalization, Other)
  Sender: FDA-Public Use
  Company Number: US-BAYER-2015-440505

PATIENT
  Age: 67 Year
  Sex: Male
  Weight: 67.12 kg

DRUGS (9)
  1. PHILLIPS^ COLON HEALTH [Suspect]
     Active Substance: PROBIOTICS NOS
     Dosage: 1 DF, QD
     Route: 048
     Dates: start: 20150412
  2. MIRALAX [Suspect]
     Active Substance: POLYETHYLENE GLYCOL 3350
     Indication: COLONOSCOPY
     Dosage: UNK
     Route: 048
     Dates: start: 20150603, end: 20150603
  3. FUROSEMIDE. [Concomitant]
     Active Substance: FUROSEMIDE
  4. CHOLESTEROL [Concomitant]
     Active Substance: CHOLESTEROL
  5. ALEVE [Suspect]
     Active Substance: NAPROXEN SODIUM
     Indication: MUSCULOSKELETAL PAIN
     Dosage: 1 DF, BID
     Route: 048
  6. ALEVE [Suspect]
     Active Substance: NAPROXEN SODIUM
     Indication: BACK PAIN
  7. ASPIRIN. [Suspect]
     Active Substance: ASPIRIN
     Indication: ISCHAEMIC HEART DISEASE PROPHYLAXIS
  8. DULCOLAX (DOCUSATE SODIUM) [Suspect]
     Active Substance: DOCUSATE SODIUM
     Dosage: 4 DF, ONCE
     Dates: start: 20150603
  9. BAYER ASPIRIN REGIMEN CHEWABLE LOW DOSE ASPIRIN ORANGE [Suspect]
     Active Substance: ASPIRIN
     Indication: ISCHAEMIC HEART DISEASE PROPHYLAXIS
     Dosage: 81 MG, UNK
     Route: 048

REACTIONS (7)
  - Intestinal haemorrhage [None]
  - Prostatic operation [None]
  - Haematochezia [None]
  - Off label use [None]
  - Coagulopathy [None]
  - Product use issue [None]
  - Diverticulitis [None]

NARRATIVE: CASE EVENT DATE: 20150422
